FAERS Safety Report 9741341 (Version 1)
Quarter: 2013Q4

REPORT INFORMATION
  Report Type: Spontaneous
  Country: US (occurrence: US)
  Receive Date: 20131209
  Receipt Date: 20131209
  Transmission Date: 20140711
  Serious: Yes (Other)
  Sender: FDA-Public Use
  Company Number: ALCN2013US006052

PATIENT
  Age: 23 Week
  Sex: Male
  Weight: .59 kg

DRUGS (2)
  1. PREDNISOLONE ACETATE [Suspect]
     Indication: POSTOPERATIVE CARE
     Dosage: 1 GTT, UNK
     Route: 047
  2. CYCLOMYDRIL [Suspect]
     Indication: POSTOPERATIVE CARE
     Dosage: 1 GTT, UNK
     Route: 047

REACTIONS (3)
  - Corneal opacity [Recovered/Resolved]
  - Flat anterior chamber of eye [Recovered/Resolved]
  - Intraocular pressure increased [Recovered/Resolved]
